FAERS Safety Report 18161686 (Version 2)
Quarter: 2020Q3

REPORT INFORMATION
  Report Type: Report from Study
  Country: None (occurrence: IL)
  Receive Date: 20200818
  Receipt Date: 20200912
  Transmission Date: 20201103
  Serious: Yes (Hospitalization, Other)
  Sender: FDA-Public Use
  Company Number: IL-ABBVIE-20K-082-3525007-00

PATIENT
  Sex: Female

DRUGS (1)
  1. HUMIRA [Suspect]
     Active Substance: ADALIMUMAB
     Indication: RHEUMATOID ARTHRITIS
     Route: 058
     Dates: start: 20200508, end: 20200814

REACTIONS (14)
  - Bladder cancer [Unknown]
  - Gallbladder fibrosis [Unknown]
  - Blood glucose increased [Not Recovered/Not Resolved]
  - Abdominal pain [Recovering/Resolving]
  - Calculus urinary [Unknown]
  - Post procedural complication [Unknown]
  - Nephrolithiasis [Not Recovered/Not Resolved]
  - C-reactive protein increased [Unknown]
  - Mobility decreased [Recovering/Resolving]
  - Appendix disorder [Unknown]
  - Blood urine present [Not Recovered/Not Resolved]
  - Hepatic fibrosis [Unknown]
  - Mental disorder [Recovering/Resolving]
  - Procedural pain [Recovering/Resolving]

NARRATIVE: CASE EVENT DATE: 2020
